FAERS Safety Report 7527687-9 (Version None)
Quarter: 2011Q2

REPORT INFORMATION
  Report Type: 
  Country: None (occurrence: None)
  Receive Date: 20110607
  Receipt Date: 20110526
  Transmission Date: 20111010
  Serious: Yes (Death)
  Sender: FDA-Public Use
  Company Number: PHHY2010JP36914

PATIENT
  Sex: Male

DRUGS (7)
  1. FRAGMIN [Concomitant]
     Indication: CHRONIC MYELOID LEUKAEMIA
     Dosage: 10000 IU, UNK
     Route: 042
     Dates: start: 20100422
  2. LANSOPRAZOLE [Concomitant]
     Indication: PROPHYLAXIS
     Dosage: 15 MG, UNK
     Route: 048
     Dates: start: 20100423
  3. ALLOPURINOL [Concomitant]
     Indication: PROPHYLAXIS
     Dosage: 200 MG, UNK
     Route: 048
     Dates: start: 20100402
  4. SULFAMETHOXAZOLE [Concomitant]
     Indication: PROPHYLAXIS
     Dosage: 2 G, UNK
     Route: 048
     Dates: start: 20100416
  5. TASIGNA [Suspect]
     Indication: CHRONIC MYELOID LEUKAEMIA
     Dosage: 800 MG, DAILY
     Route: 048
     Dates: start: 20100422
  6. OXYCONTIN [Concomitant]
     Indication: CHRONIC MYELOID LEUKAEMIA
     Dosage: 40 MG, UNK
     Route: 048
     Dates: start: 20100405
  7. FUROSEMIDE [Concomitant]
     Indication: CHRONIC MYELOID LEUKAEMIA
     Dosage: 40 MG, UNK
     Route: 042
     Dates: start: 20100402

REACTIONS (4)
  - RENAL IMPAIRMENT [None]
  - ASCITES [None]
  - PLEURAL EFFUSION [None]
  - CEREBRAL HAEMORRHAGE [None]
